FAERS Safety Report 8981273 (Version 1)
Quarter: 2012Q4

REPORT INFORMATION
  Report Type: 
  Country: CA (occurrence: CA)
  Receive Date: 20121221
  Receipt Date: 20121221
  Transmission Date: 20130627
  Serious: Yes (Other)
  Sender: FDA-Public Use
  Company Number: CHPA2012CA025492

PATIENT
  Age: 78 Year
  Sex: Female

DRUGS (3)
  1. BUCKLEY^S MIXTURE (AMMONIUM) [Suspect]
     Indication: LUNG DISORDER
     Dosage: 2 TSP, PRN
     Route: 048
  2. DRUG THERAPY NOS [Concomitant]
     Indication: LUNG DISORDER
     Dosage: 2 TSP, PRN
     Route: 048
     Dates: start: 201204, end: 201204
  3. DRUG THERAPY NOS [Concomitant]
     Indication: HIATUS HERNIA
     Dosage: UNK DF, UNK

REACTIONS (4)
  - Hypertension [Not Recovered/Not Resolved]
  - Arthritis [Not Recovered/Not Resolved]
  - Therapeutic response unexpected [Unknown]
  - Off label use [Unknown]
